FAERS Safety Report 7370544-1 (Version None)
Quarter: 2011Q1

REPORT INFORMATION
  Report Type: 
  Country: None (occurrence: None)
  Receive Date: 20110323
  Receipt Date: 20110307
  Transmission Date: 20110831
  Serious: No
  Sender: FDA-Public Use
  Company Number: US-BAYER-2011-022475

PATIENT
  Age: 83 Year
  Sex: Female
  Weight: 93 kg

DRUGS (2)
  1. ALDOMET [Concomitant]
  2. ALEVE (CAPLET) [Suspect]
     Indication: ARTHRITIS
     Dosage: 440 MG, QD

REACTIONS (1)
  - ARTHRALGIA [None]
